FAERS Safety Report 13996466 (Version 2)
Quarter: 2017Q3

REPORT INFORMATION
  Report Type: Spontaneous
  Country: JP (occurrence: JP)
  Receive Date: 20170921
  Receipt Date: 20170926
  Transmission Date: 20171128
  Serious: Yes (Hospitalization)
  Sender: FDA-Public Use
  Company Number: JP-TEVA-807046ROM

PATIENT
  Age: 63 Year
  Sex: Male

DRUGS (5)
  1. CISPLATIN. [Concomitant]
     Active Substance: CISPLATIN
     Indication: SEMINOMA
     Dosage: ON DAY 1
     Route: 065
  2. PREDNISOLONE. [Suspect]
     Active Substance: PREDNISOLONE
     Indication: TRAUMATIC LUNG INJURY
     Dosage: 15 MG/DAY AND THEN GRADUALLY TAPERED TO 10MG/DAY AND EVENTUALLY TAPERED TO 2 MG/DAY
     Route: 048
  3. BLEOMYCIN [Suspect]
     Active Substance: BLEOMYCIN SULFATE
     Indication: SEMINOMA
     Dosage: ON DAYS 1, 8, AND 15
     Route: 065
  4. ETOPOSIDE. [Concomitant]
     Active Substance: ETOPOSIDE
     Indication: SEMINOMA
     Dosage: ON DAYS 1 AND 3
     Route: 065
  5. PREDNISOLONE. [Suspect]
     Active Substance: PREDNISOLONE
     Indication: TRAUMATIC LUNG INJURY

REACTIONS (4)
  - Glucose tolerance impaired [Unknown]
  - Traumatic lung injury [Recovering/Resolving]
  - Cataract [Unknown]
  - Condition aggravated [Recovering/Resolving]
